FAERS Safety Report 7275066-4 (Version None)
Quarter: 2011Q1

REPORT INFORMATION
  Report Type: 
  Country: None (occurrence: None)
  Receive Date: 20110202
  Receipt Date: 20110202
  Transmission Date: 20110831
  Serious: No
  Sender: FDA-Public Use
  Company Number: None

PATIENT

DRUGS (2)
  1. PAXIL [Suspect]
  2. PAROXETINE HCL [Suspect]
     Dates: start: 20031101, end: 20031201

REACTIONS (4)
  - PANIC ATTACK [None]
  - PRODUCT SUBSTITUTION ISSUE [None]
  - NAUSEA [None]
  - SEDATION [None]
